FAERS Safety Report 20019176 (Version 1)
Quarter: 2021Q4

REPORT INFORMATION
  Report Type: Spontaneous
  Country: US (occurrence: US)
  Receive Date: 20211101
  Receipt Date: 20211101
  Transmission Date: 20220303
  Serious: Yes (Other)
  Sender: FDA-Public Use
  Company Number: US-SA-SAC20211027000652

PATIENT
  Age: 63 Year
  Sex: Female

DRUGS (1)
  1. NICOTINE [Suspect]
     Active Substance: NICOTINE
     Indication: Product used for unknown indication
     Dosage: UNK

REACTIONS (3)
  - Respiratory arrest [Unknown]
  - Pruritus [Unknown]
  - Seizure [Unknown]
